FAERS Safety Report 6418986-2 (Version None)
Quarter: 2009Q4

REPORT INFORMATION
  Report Type: 
  Country: None (occurrence: None)
  Receive Date: 20091029
  Receipt Date: 20091019
  Transmission Date: 20100525
  Serious: Yes (Other)
  Sender: FDA-Public Use
  Company Number: DE-JNJFOC-20090704204

PATIENT
  Sex: Female

DRUGS (1)
  1. IMODIUM AD [Suspect]
     Indication: ENTERITIS
     Route: 048

REACTIONS (2)
  - ERYTHEMA MULTIFORME [None]
  - OVARIAN CANCER RECURRENT [None]
